FAERS Safety Report 15978916 (Version 1)
Quarter: 2019Q1

REPORT INFORMATION
  Report Type: Spontaneous
  Country: CN (occurrence: CN)
  Receive Date: 20190219
  Receipt Date: 20190219
  Transmission Date: 20190418
  Serious: Yes (Hospitalization, Other)
  Sender: FDA-Public Use
  Company Number: CN-GLAXOSMITHKLINE-CN2019GSK028983

PATIENT
  Age: 18 Year
  Sex: Male

DRUGS (2)
  1. CEFUROXIME SODIUM. [Suspect]
     Active Substance: CEFUROXIME SODIUM
     Indication: PRODUCT USED FOR UNKNOWN INDICATION
     Dosage: 3 G, UNK
     Route: 042
  2. SODIUM CHLORIDE 0.9% [Concomitant]
     Active Substance: SODIUM CHLORIDE
     Indication: PRODUCT USED FOR UNKNOWN INDICATION
     Dosage: 250 ML, UNK
     Route: 041

REACTIONS (10)
  - Cardiac arrest [Unknown]
  - Anaphylactic shock [Unknown]
  - Seizure [Unknown]
  - Chest discomfort [Unknown]
  - Palpitations [Unknown]
  - Respiratory arrest [Recovered/Resolved]
  - Cyanosis [Unknown]
  - Pruritus [Unknown]
  - Pulse absent [Recovered/Resolved]
  - Loss of consciousness [Recovered/Resolved]
